FAERS Safety Report 7571015-X (Version None)
Quarter: 2011Q2

REPORT INFORMATION
  Report Type: 
  Country: None (occurrence: None)
  Receive Date: 20110624
  Receipt Date: 20110610
  Transmission Date: 20111010
  Serious: Yes (Hospitalization)
  Sender: FDA-Public Use
  Company Number: NL-WATSON-2011-09423

PATIENT
  Age: 70 Year
  Sex: Female

DRUGS (1)
  1. MORPHINE SULFATE [Suspect]
     Indication: BACK PAIN
     Dosage: 10 MG, UNK
     Route: 048

REACTIONS (1)
  - ACUTE GENERALISED EXANTHEMATOUS PUSTULOSIS [None]
